FAERS Safety Report 6530081-0 (Version None)
Quarter: 2010Q1

REPORT INFORMATION
  Report Type: 
  Country: None (occurrence: None)
  Receive Date: 20100104
  Receipt Date: 20091215
  Transmission Date: 20100710
  Serious: Yes (Other)
  Sender: FDA-Public Use
  Company Number: 2009021739

PATIENT
  Sex: Male

DRUGS (1)
  1. VIVAGLOBIN [Suspect]
     Indication: IMMUNODEFICIENCY COMMON VARIABLE
     Dosage: (9.6 G, 9.6 GRAMS IN 4 SITES SUBCUTANEOUS)
     Route: 058
     Dates: start: 20091211

REACTIONS (6)
  - ANXIETY [None]
  - HEART RATE DECREASED [None]
  - INFUSION RELATED REACTION [None]
  - RESPIRATORY ARREST [None]
  - SYNCOPE [None]
  - TONIC CLONIC MOVEMENTS [None]
